FAERS Safety Report 5677852-0 (Version None)
Quarter: 2008Q1

REPORT INFORMATION
  Report Type: 
  Country: None (occurrence: None)
  Receive Date: 20080318
  Receipt Date: 20080303
  Transmission Date: 20080703
  Serious: Yes (Hospitalization)
  Sender: FDA-Public Use
  Company Number: GXKR2008US02228

PATIENT
  Age: 78 Year
  Sex: Female

DRUGS (11)
  1. SULFAMETHOXAZOLE+TRIMETHOPRIM (NGX)(SULFAMETHOXAZOLE, TRIMETHOPRIM) UN [Suspect]
     Indication: CITROBACTER INFECTION
     Dosage: 1 DF, BID
     Dates: start: 20070702, end: 20070706
  2. TRIMETHOPRIM [Suspect]
     Indication: PROPHYLAXIS URINARY TRACT INFECTION
     Dosage: 100 MG/DAY
     Dates: start: 20070701
  3. MEMANTINE HCL [Suspect]
     Indication: SOMNOLENCE
     Dosage: 10 MG, BID
     Dates: start: 20060701
  4. DONEPEZIL HCL [Concomitant]
  5. PAROXETINE HCL [Concomitant]
  6. LISINOPRIL AND HYDROCHLOROTHIAZIDE [Concomitant]
  7. ATORVASTATIN CALCIUM [Concomitant]
  8. CIPROFLOXACIN [Concomitant]
  9. FAMOTIDINE [Concomitant]
  10. LEVODOPA-CARBIDOPA (CARBIDOPA, LEVODOPA) [Concomitant]
  11. OLANZAPINE [Concomitant]

REACTIONS (14)
  - AGITATION [None]
  - BALANCE DISORDER [None]
  - CITROBACTER INFECTION [None]
  - CONFUSIONAL STATE [None]
  - DELIRIUM [None]
  - DRUG INTERACTION [None]
  - DRY MOUTH [None]
  - GASTROOESOPHAGEAL REFLUX DISEASE [None]
  - MENTAL IMPAIRMENT [None]
  - MUSCLE TWITCHING [None]
  - MYOCLONUS [None]
  - RESTLESS LEGS SYNDROME [None]
  - TREMOR [None]
  - URINARY TRACT INFECTION [None]
